FAERS Safety Report 14652932 (Version 2)
Quarter: 2018Q3

REPORT INFORMATION
  Report Type: Report from Study
  Country: US (occurrence: US)
  Receive Date: 20180319
  Receipt Date: 20180704
  Transmission Date: 20181010
  Serious: Yes (Other)
  Sender: FDA-Public Use
  Company Number: US-AMGEN-USASL2018035193

PATIENT
  Age: 79 Year
  Sex: Female

DRUGS (3)
  1. ENBREL [Suspect]
     Active Substance: ETANERCEPT
     Indication: PLEURAL EFFUSION
     Dosage: 50 MG, QWK
     Route: 065
  2. ENBREL [Suspect]
     Active Substance: ETANERCEPT
     Indication: BREAST PAIN
  3. ENBREL [Suspect]
     Active Substance: ETANERCEPT
     Indication: RHEUMATOID ARTHRITIS

REACTIONS (5)
  - Alopecia [Unknown]
  - Injection site pain [Unknown]
  - Pneumonia [Recovering/Resolving]
  - Malaise [Unknown]
  - Diarrhoea [Unknown]
